FAERS Safety Report 9094520 (Version 1)
Quarter: 2013Q1

REPORT INFORMATION
  Report Type: Report from Study
  Country: GB (occurrence: GB)
  Receive Date: 20130204
  Receipt Date: 20130204
  Transmission Date: 20140127
  Serious: Yes (Other)
  Sender: FDA-Public Use
  Company Number: GB-JNJFOC-20130113669

PATIENT
  Sex: Female
  Weight: 61 kg

DRUGS (4)
  1. STELARA [Suspect]
     Indication: PSORIASIS
     Route: 058
     Dates: start: 20091219, end: 20120715
  2. CO-PROXAMOL [Concomitant]
     Dates: start: 20100813
  3. FERROUS SULFATE [Concomitant]
     Dates: start: 20100413
  4. FOLIC ACID [Concomitant]
     Dates: start: 20120701

REACTIONS (2)
  - Exposure during pregnancy [Recovered/Resolved]
  - Psoriasis [Unknown]
